FAERS Safety Report 4916576-1 (Version None)
Quarter: 2006Q1

REPORT INFORMATION
  Report Type: 
  Country: None (occurrence: None)
  Receive Date: 20060220
  Receipt Date: 20060120
  Transmission Date: 20060701
  Serious: Yes (Other)
  Sender: FDA-Public Use
  Company Number: US-GLAXOSMITHKLINE-A0590499A

PATIENT
  Age: 66 Year
  Sex: Male
  Weight: 73.2 kg

DRUGS (3)
  1. AVANDIA [Suspect]
     Dosage: 4MG TWICE PER DAY
     Route: 048
     Dates: start: 20051001, end: 20060101
  2. METFORMIN HCL [Suspect]
     Dosage: 850MG THREE TIMES PER DAY
     Route: 048
     Dates: start: 20051001
  3. CRESTOR [Concomitant]
     Dosage: 10MG PER DAY
     Route: 048
     Dates: start: 20050329, end: 20060101

REACTIONS (4)
  - ALANINE AMINOTRANSFERASE INCREASED [None]
  - ASPARTATE AMINOTRANSFERASE INCREASED [None]
  - CHROMATURIA [None]
  - FAECES DISCOLOURED [None]
